FAERS Safety Report 5542951-0 (Version None)
Quarter: 2007Q4

REPORT INFORMATION
  Report Type: 
  Country: None (occurrence: None)
  Receive Date: 20071210
  Receipt Date: 20071203
  Transmission Date: 20080405
  Serious: Yes (Other)
  Sender: FDA-Public Use
  Company Number: JP-MERCK-0712USA01312

PATIENT
  Age: 77 Year
  Sex: Male
  Weight: 70 kg

DRUGS (1)
  1. PRIMAXIN [Suspect]
     Route: 030
     Dates: start: 20071116, end: 20071130

REACTIONS (1)
  - EPILEPSY [None]
